FAERS Safety Report 20987083 (Version 1)
Quarter: 2022Q2

REPORT INFORMATION
  Report Type: Spontaneous
  Country: FR (occurrence: FR)
  Receive Date: 20220621
  Receipt Date: 20220621
  Transmission Date: 20220721
  Serious: Yes (Other)
  Sender: FDA-Public Use
  Company Number: None

PATIENT

DRUGS (7)
  1. LAMICTAL [Suspect]
     Active Substance: LAMOTRIGINE
     Indication: Epilepsy
     Dosage: 1 DF
     Route: 048
     Dates: start: 20220211
  2. LAMICTAL [Suspect]
     Active Substance: LAMOTRIGINE
     Indication: Epilepsy
     Dosage: 1 DF
     Route: 048
     Dates: start: 20220211
  3. AMISULPRIDE [Suspect]
     Active Substance: AMISULPRIDE
     Indication: Medication error
     Dosage: 200 MG
     Route: 048
     Dates: start: 20220211
  4. AMISULPRIDE [Suspect]
     Active Substance: AMISULPRIDE
     Indication: Medication error
     Dosage: 400 MG
     Route: 048
     Dates: start: 20220211
  5. ZYPREXA [Suspect]
     Active Substance: OLANZAPINE
     Indication: Medication error
     Dosage: 10 MG
     Route: 048
     Dates: start: 20220211
  6. PRAZEPAM [Suspect]
     Active Substance: PRAZEPAM
     Indication: Medication error
     Dosage: 10 MG
     Route: 048
     Dates: start: 20220211
  7. VALPROATE SODIUM [Suspect]
     Active Substance: VALPROATE SODIUM
     Indication: Epilepsy
     Dosage: 2 DF
     Route: 048
     Dates: start: 20220211

REACTIONS (3)
  - Wrong patient received product [Recovered/Resolved]
  - Somnolence [Recovered/Resolved]
  - Ataxia [Recovered/Resolved]

NARRATIVE: CASE EVENT DATE: 20220211
